FAERS Safety Report 4829588-3 (Version None)
Quarter: 2005Q4

REPORT INFORMATION
  Report Type: 
  Country: None (occurrence: None)
  Receive Date: 20051116
  Receipt Date: 20051101
  Transmission Date: 20060501
  Serious: Yes (Other)
  Sender: FDA-Public Use
  Company Number: US-ROCHE-423258

PATIENT
  Age: 70 Year
  Sex: Female
  Weight: 55.3 kg

DRUGS (5)
  1. BONIVA [Suspect]
     Indication: OSTEOPOROSIS
     Route: 048
     Dates: start: 20050715
  2. BONIVA [Suspect]
     Route: 048
     Dates: start: 20051102
  3. ASPIRIN [Concomitant]
     Indication: DRUG USE FOR UNKNOWN INDICATION
     Route: 048
  4. ZOCOR [Concomitant]
     Route: 048
  5. ALTACE [Concomitant]
     Indication: HYPERTENSION
     Route: 048

REACTIONS (1)
  - DEAFNESS [None]
